FAERS Safety Report 24877745 (Version 1)
Quarter: 2025Q1

REPORT INFORMATION
  Report Type: Spontaneous
  Country: JP (occurrence: JP)
  Receive Date: 20250123
  Receipt Date: 20250123
  Transmission Date: 20250409
  Serious: Yes (Other)
  Sender: ACCORD
  Company Number: JP-MLMSERVICE-20250107-PI340479-00218-2

PATIENT
  Sex: Male

DRUGS (2)
  1. METHOTREXATE [Suspect]
     Active Substance: METHOTREXATE
     Indication: Precursor T-lymphoblastic lymphoma/leukaemia stage III
     Dosage: HIGH-DOSE
  2. METHOTREXATE [Suspect]
     Active Substance: METHOTREXATE
     Indication: Metastases to testicle
     Dosage: HIGH-DOSE

REACTIONS (3)
  - Stomatitis [Unknown]
  - Febrile neutropenia [Unknown]
  - Osteonecrosis [Unknown]
